FAERS Safety Report 16859459 (Version 1)
Quarter: 2019Q4

REPORT INFORMATION
  Report Type: Spontaneous
  Country: US (occurrence: US)
  Receive Date: 20190923
  Receipt Date: 20190923
  Transmission Date: 20200122
  Serious: Yes (Other)
  Sender: FDA-Public Use
  Company Number: None

PATIENT
  Age: 41 Year
  Sex: Male
  Weight: 72.9 kg

DRUGS (1)
  1. LIFE EXTENSION PREGNENOLONE 100MG [Suspect]
     Active Substance: PREGNENOLONE

REACTIONS (7)
  - Heart rate increased [None]
  - Vision blurred [None]
  - Head discomfort [None]
  - Blood pressure increased [None]
  - Nausea [None]
  - Ocular hyperaemia [None]
  - Dizziness [None]
